FAERS Safety Report 11221726 (Version 1)
Quarter: 2015Q2

REPORT INFORMATION
  Report Type: Spontaneous
  Country: US (occurrence: US)
  Receive Date: 20150626
  Receipt Date: 20150626
  Transmission Date: 20150821
  Serious: No
  Sender: FDA-Public Use
  Company Number: US-BAYER-2015-364238

PATIENT
  Age: 88 Year
  Sex: Female
  Weight: 68 kg

DRUGS (2)
  1. CLARITIN [Suspect]
     Active Substance: LORATADINE
     Indication: COUGH
     Dosage: 1 DF, PRN
     Route: 048
     Dates: start: 20150619
  2. BAYER ASPIRIN FAST RELEASE POWDER [Concomitant]
     Dosage: UNK

REACTIONS (1)
  - Product use issue [Unknown]

NARRATIVE: CASE EVENT DATE: 20150622
